FAERS Safety Report 5112540-0 (Version None)
Quarter: 2006Q3

REPORT INFORMATION
  Report Type: 
  Country: None (occurrence: None)
  Receive Date: 20060922
  Receipt Date: 20010123
  Transmission Date: 20061208
  Serious: Yes (Hospitalization)
  Sender: FDA-Public Use
  Company Number: JP-NOVOPROD-207334

PATIENT
  Sex: Male
  Weight: 25 kg

DRUGS (4)
  1. NORDITROPIN? PENSET? [Suspect]
     Indication: GROWTH HORMONE DEFICIENCY
     Route: 058
     Dates: start: 19951013, end: 19970130
  2. NORDITROPIN? PENSET? [Suspect]
     Route: 058
     Dates: start: 19970131, end: 19980507
  3. NORDITROPIN? PENSET? [Suspect]
     Route: 058
     Dates: start: 19980508, end: 20000106
  4. NORDITROPIN? PENSET? [Suspect]
     Route: 058
     Dates: start: 20000107, end: 20000414

REACTIONS (1)
  - GLOMERULONEPHRITIS PROLIFERATIVE [None]
